FAERS Safety Report 12934585 (Version 1)
Quarter: 2016Q4

REPORT INFORMATION
  Report Type: Report from Study
  Country: None (occurrence: CA)
  Receive Date: 20161111
  Receipt Date: 20161111
  Transmission Date: 20170207
  Serious: Yes (Other)
  Sender: FDA-Public Use
  Company Number: CA-ABBVIE-16K-028-1774186-00

PATIENT
  Sex: Male

DRUGS (2)
  1. SERENITOL [Concomitant]
     Indication: CROHN^S DISEASE
  2. HUMIRA [Suspect]
     Active Substance: ADALIMUMAB
     Indication: CROHN^S DISEASE
     Route: 058
     Dates: start: 20130301

REACTIONS (5)
  - Vomiting [Recovered/Resolved]
  - Gastrointestinal obstruction [Recovered/Resolved]
  - Inflammatory marker increased [Not Recovered/Not Resolved]
  - Crohn^s disease [Recovered/Resolved]
  - Inappropriate schedule of drug administration [Unknown]

NARRATIVE: CASE EVENT DATE: 2016
